FAERS Safety Report 18422642 (Version 13)
Quarter: 2023Q1

REPORT INFORMATION
  Report Type: Spontaneous
  Country: US (occurrence: US)
  Receive Date: 20201023
  Receipt Date: 20230216
  Transmission Date: 20230417
  Serious: Yes (Other)
  Sender: FDA-Public Use
  Company Number: US-PFIZER INC-2020269891

PATIENT
  Age: 37 Year
  Sex: Female
  Weight: 82.1 kg

DRUGS (4)
  1. XELJANZ [Suspect]
     Active Substance: TOFACITINIB CITRATE
     Indication: Colitis ulcerative
     Dosage: 5 MG, 2X/DAY (10 MG TAB CUT IN HALF)
     Route: 048
     Dates: start: 2019
  2. XELJANZ [Suspect]
     Active Substance: TOFACITINIB CITRATE
     Indication: Proctitis ulcerative
     Dosage: 5 MG, 1X/DAY (10 MG TABLET, HALF TABLET EQUALING 5MG ONCE A DAY BY MOUTH AT NIGHT)
     Route: 048
     Dates: start: 202005, end: 20200814
  3. XELJANZ [Suspect]
     Active Substance: TOFACITINIB CITRATE
     Dosage: 10 MG, 2X/DAY
     Route: 048
     Dates: start: 2020, end: 2020
  4. XELJANZ [Suspect]
     Active Substance: TOFACITINIB CITRATE
     Dosage: 10 MG
     Route: 048
     Dates: start: 2020, end: 202010

REACTIONS (4)
  - Drug dependence [Unknown]
  - Haemorrhage [Unknown]
  - Intentional product misuse [Unknown]
  - Condition aggravated [Not Recovered/Not Resolved]

NARRATIVE: CASE EVENT DATE: 20200101
